FAERS Safety Report 21948333 (Version 10)
Quarter: 2023Q4

REPORT INFORMATION
  Report Type: Report from Study
  Country: CO (occurrence: CO)
  Receive Date: 20230203
  Receipt Date: 20231009
  Transmission Date: 20240109
  Serious: Yes (Hospitalization, Other)
  Sender: FDA-Public Use
  Company Number: CO-002147023-NVSC2022CO203514

PATIENT
  Sex: Female

DRUGS (1)
  1. BROLUCIZUMAB [Suspect]
     Active Substance: BROLUCIZUMAB
     Indication: Macular degeneration
     Dosage: 120 MG, QMO IN THE EYE
     Route: 047

REACTIONS (13)
  - Illness [Unknown]
  - Blindness [Unknown]
  - Gastroenteritis [Recovered/Resolved]
  - Malaise [Unknown]
  - Discouragement [Unknown]
  - General physical health deterioration [Unknown]
  - Hypophagia [Unknown]
  - Tonsillitis [Unknown]
  - Polydipsia [Unknown]
  - Vertigo [Unknown]
  - Ear disorder [Unknown]
  - Hypertension [Unknown]
  - Incorrect dose administered [Unknown]
